FAERS Safety Report 8746083 (Version 2)
Quarter: 2012Q4

REPORT INFORMATION
  Report Type: 
  Country: IE (occurrence: IE)
  Receive Date: 20120827
  Receipt Date: 20120829
  Transmission Date: 20130627
  Serious: Yes (Other)
  Sender: FDA-Public Use
  Company Number: IE-JNJFOC-20120811690

PATIENT
  Age: 78 Year
  Sex: Male

DRUGS (8)
  1. TAPENTADOL HYDROCHLORIDE [Suspect]
     Indication: BACK PAIN
     Route: 048
     Dates: end: 201208
  2. TAPENTADOL HYDROCHLORIDE [Suspect]
     Indication: BACK PAIN
     Route: 048
     Dates: start: 201208, end: 201208
  3. TRAMADOL HYDROCHLORIDE [Concomitant]
     Indication: BACK PAIN
     Route: 065
  4. TRAMADOL HYDROCHLORIDE [Concomitant]
     Indication: BACK PAIN
     Route: 065
     Dates: end: 201208
  5. LYRICA [Concomitant]
     Indication: PRODUCT USED FOR UNKNOWN INDICATION
     Route: 048
     Dates: end: 201208
  6. LYRICA [Concomitant]
     Indication: PRODUCT USED FOR UNKNOWN INDICATION
     Route: 048
  7. VERSATIS [Concomitant]
     Indication: BACK PAIN
     Route: 061
  8. PARACETAMOL [Concomitant]
     Route: 065

REACTIONS (3)
  - Amnesia [Recovered/Resolved]
  - Pain [Not Recovered/Not Resolved]
  - Visual impairment [Recovered/Resolved]
